FAERS Safety Report 12721852 (Version 1)
Quarter: 2016Q3

REPORT INFORMATION
  Report Type: Spontaneous
  Country: HU (occurrence: HU)
  Receive Date: 20160907
  Receipt Date: 20160907
  Transmission Date: 20161109
  Serious: Yes (Hospitalization)
  Sender: FDA-Public Use
  Company Number: HU-FRESENIUS KABI-FK201606283

PATIENT
  Sex: Female

DRUGS (10)
  1. DIAPREL [Concomitant]
     Active Substance: GLICLAZIDE
     Indication: DIABETES MELLITUS
  2. EMETRON [Concomitant]
     Indication: PREMEDICATION
     Dates: start: 20160823, end: 20160823
  3. PANTOPRAZOL SANDOZ [Concomitant]
     Dates: start: 20160822, end: 20160823
  4. METASOL [Concomitant]
     Active Substance: BENZOPHENONE\HYDROQUINONE
     Indication: PREMEDICATION
     Dates: start: 20160823, end: 20160823
  5. LISONORM [Concomitant]
     Indication: HYPERTENSION
  6. CONCOR [Concomitant]
     Active Substance: BISOPROLOL FUMARATE
     Indication: HYPERTENSION
  7. QUAMATEL [Concomitant]
     Active Substance: FAMOTIDINE
     Dates: start: 20160822, end: 20160823
  8. APO-FAMOTIDIN [Concomitant]
     Indication: PREMEDICATION
     Dates: start: 20160822, end: 20160823
  9. PACLITAXEL 6MG/ML CONCENTRATE FOR SOLUTION FOR INFUSION [Suspect]
     Active Substance: PACLITAXEL
     Indication: OVARIAN CANCER METASTATIC
     Route: 042
     Dates: start: 20160823, end: 20160823
  10. SUPRASTIN [Concomitant]
     Active Substance: CHLOROPYRAMINE HYDROCHLORIDE
     Indication: PREMEDICATION
     Dates: start: 20160822, end: 20160823

REACTIONS (5)
  - Hyperhidrosis [Recovered/Resolved]
  - Feeling hot [Recovered/Resolved]
  - Chest discomfort [Recovered/Resolved]
  - Dyspnoea [Recovered/Resolved]
  - Back pain [Recovered/Resolved]

NARRATIVE: CASE EVENT DATE: 20160823
